FAERS Safety Report 10670719 (Version 10)
Quarter: 2019Q3

REPORT INFORMATION
  Report Type: Spontaneous
  Country: US (occurrence: US)
  Receive Date: 20141223
  Receipt Date: 20190708
  Transmission Date: 20191004
  Serious: No
  Sender: FDA-Public Use
  Company Number: US-PFIZER INC-2014348990

PATIENT
  Age: 50 Year
  Sex: Female
  Weight: 92 kg

DRUGS (12)
  1. HYDROCODONE-ACETAMINOPHEN [Concomitant]
     Active Substance: ACETAMINOPHEN\HYDROCODONE
     Dosage: 1 DF, 2X/DAY
     Route: 048
     Dates: start: 20150210
  2. AMBIEN [Concomitant]
     Active Substance: ZOLPIDEM TARTRATE
     Dosage: 10 MG, AS NEEDED
     Route: 048
     Dates: start: 20150210
  3. LYRICA [Suspect]
     Active Substance: PREGABALIN
     Dosage: 200 MG, 3X/DAY (2 CAPSULE 3 TIMES PER DAY)
  4. LYRICA [Suspect]
     Active Substance: PREGABALIN
     Dosage: 600 MG, DAILY (2 CAPSULES BY MOUTH IN THE MORNING, 4 CAPSULES BY MOUTH AT NIGHT)
     Route: 048
  5. ALPRAZOLAM. [Concomitant]
     Active Substance: ALPRAZOLAM
     Dosage: 1 MG, 4X/DAY
     Route: 048
  6. HYDROCODONE-ACETAMINOPHEN [Concomitant]
     Active Substance: ACETAMINOPHEN\HYDROCODONE
     Dosage: 1 DF (10/315 MG), 2X/DAY
     Route: 048
     Dates: start: 20140908
  7. SERTRALINE [Concomitant]
     Active Substance: SERTRALINE HYDROCHLORIDE
     Dosage: 100 MG, 1X/DAY
     Route: 048
  8. METFORMIN [Concomitant]
     Active Substance: METFORMIN HYDROCHLORIDE
     Dosage: UNK, 2X/DAY
     Route: 048
  9. TRAZODONE [Concomitant]
     Active Substance: TRAZODONE HYDROCHLORIDE
     Dosage: 300 MG, 1X/DAY (AT BEDTIME)
     Route: 048
  10. WELLBUTRIN XL [Concomitant]
     Active Substance: BUPROPION HYDROCHLORIDE
     Dosage: 150 MG, 1X/DAY
     Route: 048
  11. LYRICA [Suspect]
     Active Substance: PREGABALIN
     Indication: PAIN IN EXTREMITY
     Dosage: 500 MG, DAILY (200 MG IN THE MORNING, 300 MG AT BEDTIME)
     Route: 048
  12. ASPIRIN [ACETYLSALICYLIC ACID] [Concomitant]
     Active Substance: ASPIRIN
     Dosage: 81 MG, 1X/DAY
     Route: 048

REACTIONS (3)
  - Condition aggravated [Unknown]
  - Influenza [Unknown]
  - Body mass index increased [Unknown]
